FAERS Safety Report 9443489 (Version 2)
Quarter: 2013Q3

REPORT INFORMATION
  Report Type: Spontaneous
  Country: US (occurrence: US)
  Receive Date: 20130806
  Receipt Date: 20130808
  Transmission Date: 20140515
  Serious: Yes (Other)
  Sender: FDA-Public Use
  Company Number: CHPA2013US012255

PATIENT
  Age: 69 Year
  Sex: Female

DRUGS (8)
  1. VOLTAREN GEL [Suspect]
     Indication: ARTHRITIS
     Dosage: UNK, UNK
     Route: 061
     Dates: start: 2011
  2. VOLTAREN GEL [Suspect]
     Dosage: 2 G, BID
     Route: 061
     Dates: start: 20130730
  3. BABY ASPIRIN [Concomitant]
     Indication: CARDIAC DISORDER
     Dosage: 81 MG, QD
     Route: 048
     Dates: start: 2003
  4. AMLODIPINE [Concomitant]
     Indication: BLOOD PRESSURE
     Dosage: 5 MG, QD
  5. OMEPRAZOLE [Concomitant]
     Indication: GASTROOESOPHAGEAL REFLUX DISEASE
     Dosage: 40 MG, QD
  6. ARMOUR THYROID [Concomitant]
     Indication: HYPOTHYROIDISM
     Dosage: 60 MG, QD
  7. DIOVAN [Concomitant]
     Indication: BLOOD PRESSURE
     Dosage: 320 MG, QD
  8. NITROGLYCERIN TRANSDERMAL SYSTEM [Concomitant]
     Dosage: UNK, 6-12 HRSON/12 HRS OFF

REACTIONS (3)
  - Arthritis [Not Recovered/Not Resolved]
  - Wrong technique in drug usage process [Unknown]
  - Underdose [Unknown]
